FAERS Safety Report 26121563 (Version 1)
Quarter: 2025Q4

REPORT INFORMATION
  Report Type: Spontaneous
  Country: US (occurrence: US)
  Receive Date: 20251204
  Receipt Date: 20251204
  Transmission Date: 20260117
  Serious: Yes (Other)
  Sender: CHATTEM
  Company Number: US-SSP-2020SA338960AA

PATIENT
  Age: 21 Year
  Sex: Male

DRUGS (3)
  1. DIPHENHYDRAMINE [Suspect]
     Active Substance: DIPHENHYDRAMINE
     Indication: Depression
     Dosage: INCREASED HIS DIPHENHYDRAMINE DOSE TO 1350 MG/D (MAXIMUM: 300 MG/D)
     Route: 065
  2. RISPERIDONE [Concomitant]
     Active Substance: RISPERIDONE
     Indication: Schizophrenia
     Dosage: DOSE DESCRIPTION : 3 MG, QD
     Route: 065
  3. OLANZAPINE [Concomitant]
     Active Substance: OLANZAPINE
     Indication: Schizophrenia
     Dosage: DOSE DESCRIPTION : 25 MG, QD
     Route: 065

REACTIONS (3)
  - Drug dependence [Recovered/Resolved]
  - Drug abuse [Unknown]
  - Intentional overdose [Unknown]
